FAERS Safety Report 11536670 (Version 1)
Quarter: 2015Q3

REPORT INFORMATION
  Report Type: Spontaneous
  Country: AU (occurrence: AU)
  Receive Date: 20150922
  Receipt Date: 20150922
  Transmission Date: 20151125
  Serious: Yes (Disabling)
  Sender: FDA-Public Use
  Company Number: AU-TEVA-595400ISR

PATIENT
  Sex: Female

DRUGS (6)
  1. WARFARIN [Concomitant]
     Active Substance: WARFARIN
  2. OROXINE / THYROXINE [Concomitant]
  3. STALEVO / CARBIDOPA/LEVODOPA/ENTACAPONE [Concomitant]
     Dosage: 100/25/100 ORAL X4 DAILY
  4. AZILECT [Suspect]
     Active Substance: RASAGILINE MESYLATE
     Dates: start: 20141222, end: 20150107
  5. DICHLOROTHIAZIDE [Concomitant]
  6. TENORMIN / ATENOLOL [Concomitant]

REACTIONS (3)
  - Dyspnoea [Recovered/Resolved]
  - Pruritus [Recovered/Resolved]
  - Oedema peripheral [Recovered/Resolved]
